FAERS Safety Report 25778158 (Version 2)
Quarter: 2025Q3

REPORT INFORMATION
  Report Type: Spontaneous
  Country: US (occurrence: US)
  Receive Date: 20250909
  Receipt Date: 20250911
  Transmission Date: 20251020
  Serious: No
  Sender: PFIZER
  Company Number: US-PFIZER INC-PV202500108016

PATIENT
  Age: 41 Year
  Sex: Female

DRUGS (4)
  1. METHYLPREDNISOLONE SODIUM SUCCINATE [Suspect]
     Active Substance: METHYLPREDNISOLONE SODIUM SUCCINATE
     Indication: Paraneoplastic syndrome
     Dosage: 1000 MG, DAILY
     Route: 042
  2. METHYLPREDNISOLONE SODIUM SUCCINATE [Suspect]
     Active Substance: METHYLPREDNISOLONE SODIUM SUCCINATE
     Indication: Encephalitis autoimmune
  3. PREDNISONE [Suspect]
     Active Substance: PREDNISONE
     Indication: Paraneoplastic syndrome
     Dosage: 80 MG, DAILY
  4. PREDNISONE [Suspect]
     Active Substance: PREDNISONE
     Indication: Encephalitis autoimmune

REACTIONS (2)
  - Hypomania [Unknown]
  - Off label use [Unknown]
